FAERS Safety Report 21222767 (Version 1)
Quarter: 2022Q3

REPORT INFORMATION
  Report Type: Report from Study
  Country: US (occurrence: US)
  Receive Date: 20220817
  Receipt Date: 20220817
  Transmission Date: 20221027
  Serious: Yes (Other)
  Sender: FDA-Public Use
  Company Number: US-BRISTOL-MYERS SQUIBB COMPANY-2022-085375

PATIENT
  Age: 65 Year
  Sex: Male
  Weight: 109.32 kg

DRUGS (2)
  1. POMALYST [Suspect]
     Active Substance: POMALIDOMIDE
     Indication: Plasma cell myeloma
     Dosage: 3 TIMES A WEEK MONDAY, WEDNESDAY AND FRIDAY
     Route: 048
     Dates: start: 20211027
  2. DARATUMUMAB [Suspect]
     Active Substance: DARATUMUMAB
     Indication: Product used for unknown indication
     Route: 065

REACTIONS (2)
  - Nervous system disorder [Unknown]
  - Off label use [Unknown]
